FAERS Safety Report 12939472 (Version 4)
Quarter: 2023Q2

REPORT INFORMATION
  Report Type: Report from Study
  Country: JP (occurrence: JP)
  Receive Date: 20161115
  Receipt Date: 20230424
  Transmission Date: 20230721
  Serious: Yes (Hospitalization)
  Sender: FDA-Public Use
  Company Number: JP-PFIZER INC-2015341382

PATIENT
  Age: 31 Year
  Sex: Female
  Weight: 47.95 kg

DRUGS (16)
  1. SIROLIMUS [Suspect]
     Active Substance: SIROLIMUS
     Indication: Lymphangioleiomyomatosis
     Dosage: 1 MG, DAILY (1 MG, 1D)
     Route: 065
     Dates: start: 20150204, end: 20150325
  2. SIROLIMUS [Suspect]
     Active Substance: SIROLIMUS
     Dosage: 1 MG, DAILY (1 MG, 1D)
     Route: 065
     Dates: start: 20150422, end: 20150722
  3. SIROLIMUS [Suspect]
     Active Substance: SIROLIMUS
     Dosage: 2 MG, DAILY (2MG, 1D)
     Route: 065
     Dates: start: 20150723, end: 20150828
  4. SIROLIMUS [Suspect]
     Active Substance: SIROLIMUS
     Dosage: 1 MG, DAILY (1MG, 1D)
     Route: 065
     Dates: start: 20151028
  5. SPIRIVA [Concomitant]
     Active Substance: TIOTROPIUM BROMIDE MONOHYDRATE
     Indication: Chronic obstructive pulmonary disease
     Dosage: 2.5 UG, 1X/DAY
     Route: 055
     Dates: start: 20150918
  6. INDACATEROL [Concomitant]
     Active Substance: INDACATEROL
     Indication: Chronic obstructive pulmonary disease
     Dosage: 150 UG, 1X/DAY
     Route: 055
     Dates: start: 20150918
  7. TALION [Concomitant]
     Indication: Rhinitis allergic
     Dosage: 10 MG, 2X/DAY
     Route: 048
     Dates: start: 20150304
  8. TALION [Concomitant]
     Indication: Prophylaxis
  9. JUVELA [Concomitant]
     Active Substance: .ALPHA.-TOCOPHEROL\RETINOL
     Dosage: UNK
  10. CINAL [Concomitant]
     Dosage: UNK
  11. AMBROXOL HYDROCHLORIDE [Concomitant]
     Active Substance: AMBROXOL HYDROCHLORIDE
     Dosage: 45 MG, UNK
     Route: 048
     Dates: start: 20150218
  12. CODEINE PHOSPHATE [Concomitant]
     Active Substance: CODEINE PHOSPHATE
     Dosage: UNK
     Route: 048
     Dates: start: 20150208
  13. CODEINE PHOSPHATE [Concomitant]
     Active Substance: CODEINE PHOSPHATE
     Dosage: UNK
     Route: 048
     Dates: start: 20150218
  14. MAGNESIUM OXIDE [Concomitant]
     Active Substance: MAGNESIUM OXIDE
     Dosage: 250 MG, UNK
     Route: 048
     Dates: start: 20150218
  15. UMECLIDINIUM BROMIDE\VILANTEROL TRIFENATATE [Concomitant]
     Active Substance: UMECLIDINIUM BROMIDE\VILANTEROL TRIFENATATE
     Dosage: 1 DF, (1 DOSAGE FORMS,1 IN 1 D)
     Route: 055
     Dates: start: 20150919
  16. POLARAMINE [Concomitant]
     Active Substance: DEXCHLORPHENIRAMINE MALEATE
     Dosage: UNK
     Route: 048

REACTIONS (3)
  - Pneumothorax [Recovered/Resolved]
  - Malaise [Recovered/Resolved]
  - Product use in unapproved indication [Unknown]

NARRATIVE: CASE EVENT DATE: 20150204
